FAERS Safety Report 14686702 (Version 1)
Quarter: 2018Q1

REPORT INFORMATION
  Report Type: Spontaneous
  Country: GB (occurrence: GB)
  Receive Date: 20180327
  Receipt Date: 20180327
  Transmission Date: 20180509
  Serious: Yes (Hospitalization)
  Sender: FDA-Public Use
  Company Number: GB-B. BRAUN MEDICAL INC.-2044645

PATIENT
  Sex: Female

DRUGS (7)
  1. AMINOVEN 15% [Suspect]
     Active Substance: AMINO ACIDS
     Route: 041
  2. POTASSIUM CHLORIDE. [Suspect]
     Active Substance: POTASSIUM CHLORIDE
     Route: 041
  3. DEXTROSE INJECTIONS USP 0264-7510-00 0264-7510-20 [Suspect]
     Active Substance: DEXTROSE
     Indication: PARENTERAL NUTRITION
     Route: 041
  4. AMINOVEN [Suspect]
     Active Substance: AMINO ACIDS
     Route: 041
  5. SODIUM GLYCEROPHOSPHATE [Suspect]
     Active Substance: SODIUM GLYCEROPHOSPHATE
     Route: 041
  6. GLUCOSE MONOHYDRATE, STRENGTH 50% [Suspect]
     Active Substance: DEXTROSE MONOHYDRATE
     Route: 041
  7. SMOFLIPID [Suspect]
     Active Substance: FISH OIL\MEDIUM-CHAIN TRIGLYCERIDES\OLIVE OIL\SOYBEAN OIL
     Route: 041

REACTIONS (1)
  - Diarrhoea [Unknown]
